FAERS Safety Report 16215091 (Version 1)
Quarter: 2019Q2

REPORT INFORMATION
  Report Type: Spontaneous
  Country: US (occurrence: US)
  Receive Date: 20190418
  Receipt Date: 20190418
  Transmission Date: 20190711
  Serious: Yes (Other)
  Sender: FDA-Public Use
  Company Number: None

PATIENT
  Age: 72 Year
  Sex: Female
  Weight: 82.53 kg

DRUGS (22)
  1. LATANOPROST. [Concomitant]
     Active Substance: LATANOPROST
  2. MULTIVITAMINS [Concomitant]
     Active Substance: VITAMINS
  3. ROSUVASTATIN. [Concomitant]
     Active Substance: ROSUVASTATIN
  4. LACTULOSE. [Concomitant]
     Active Substance: LACTULOSE
  5. LORATADINE. [Concomitant]
     Active Substance: LORATADINE
  6. ALUMINIUM-MAGNESIUM [Concomitant]
  7. KEPPRA [Concomitant]
     Active Substance: LEVETIRACETAM
  8. ACETAMINOPHEN. [Concomitant]
     Active Substance: ACETAMINOPHEN
  9. ONDASETRON [Concomitant]
     Active Substance: ONDANSETRON
  10. BYSTOLIC [Concomitant]
     Active Substance: NEBIVOLOL HYDROCHLORIDE
  11. MEDROL [Concomitant]
     Active Substance: METHYLPREDNISOLONE
  12. NYAMYC [Concomitant]
     Active Substance: NYSTATIN
  13. GINGER. [Concomitant]
     Active Substance: GINGER
  14. VITAMIN D3 [Concomitant]
     Active Substance: CHOLECALCIFEROL
  15. ASPIRIN. [Concomitant]
     Active Substance: ASPIRIN
  16. TEMOZOLOMIDE. [Suspect]
     Active Substance: TEMOZOLOMIDE
     Indication: BRAIN NEOPLASM
     Dosage: ?          OTHER FREQUENCY:BID FOR 5 DAYS;?
     Route: 048
     Dates: start: 20190221
  17. COLACE [Concomitant]
     Active Substance: DOCUSATE SODIUM
  18. VITAMIN B12 [Concomitant]
     Active Substance: CYANOCOBALAMIN
  19. BACTRIM DS [Concomitant]
     Active Substance: SULFAMETHOXAZOLE\TRIMETHOPRIM
  20. TEMOZOLOMIDE. [Suspect]
     Active Substance: TEMOZOLOMIDE
     Indication: BRAIN NEOPLASM
     Dosage: ?          OTHER FREQUENCY:QD FOR 5 DAYS;?
     Route: 048
     Dates: start: 20190221
  21. ALIGN [Concomitant]
     Active Substance: BIFIDOBACTERIUM LONGUM SUBSP. INFANTIS
  22. OMEPRAZOLE. [Concomitant]
     Active Substance: OMEPRAZOLE

REACTIONS (1)
  - Fatigue [None]
